FAERS Safety Report 6517567-X (Version None)
Quarter: 2009Q4

REPORT INFORMATION
  Report Type: 
  Country: None (occurrence: None)
  Receive Date: 20091224
  Receipt Date: 20091216
  Transmission Date: 20100525
  Serious: Yes (Other)
  Sender: FDA-Public Use
  Company Number: FR-ROCHE-675464

PATIENT
  Age: 47 Year
  Sex: Female

DRUGS (3)
  1. BONIVA [Suspect]
     Indication: OSTEOPOROSIS
     Route: 048
     Dates: start: 20080901
  2. BONIVA [Suspect]
     Route: 042
     Dates: start: 20081201, end: 20090501
  3. BONIVA [Suspect]
     Dosage: REINTRODUCED ON AN UNSPECIFIED DATE.
     Route: 042

REACTIONS (5)
  - CYTOMEGALOVIRUS INFECTION [None]
  - FATIGUE [None]
  - INFLUENZA [None]
  - MYOCARDIAL INFARCTION [None]
  - SEPTIC SHOCK [None]
